FAERS Safety Report 8064149-7 (Version None)
Quarter: 2012Q1

REPORT INFORMATION
  Report Type: 
  Country: None (occurrence: None)
  Receive Date: 20120123
  Receipt Date: 20120117
  Transmission Date: 20120608
  Serious: Yes (Hospitalization)
  Sender: FDA-Public Use
  Company Number: FR-GLAXOSMITHKLINE-B0775941A

PATIENT
  Sex: Female

DRUGS (8)
  1. LERCANIDIPINE [Concomitant]
     Dosage: 20MG PER DAY
     Route: 048
  2. INDAPAMIDE [Suspect]
     Indication: PRODUCT USED FOR UNKNOWN INDICATION
     Dosage: 1UNIT PER DAY
     Route: 048
     Dates: start: 20101201, end: 20111102
  3. FEMARA [Concomitant]
     Dosage: 2.5MG PER DAY
     Route: 048
  4. ACETAMINOPHEN [Concomitant]
     Indication: PAIN
     Dosage: 1000MG AS REQUIRED
     Route: 048
  5. LORAZEPAM [Concomitant]
     Dosage: 2.5MG PER DAY
     Route: 048
  6. PAROXETINE HCL [Suspect]
     Indication: PRODUCT USED FOR UNKNOWN INDICATION
     Dosage: 20MG PER DAY
     Route: 048
     Dates: start: 20111024, end: 20111102
  7. AMLODIPINE BESYLATE [Concomitant]
     Dosage: 5MG TWICE PER DAY
     Route: 048
  8. VOLTAREN [Concomitant]
     Route: 061
     Dates: start: 20101201, end: 20111102

REACTIONS (5)
  - HYPONATRAEMIA [None]
  - FALL [None]
  - DISORIENTATION [None]
  - HYPOKALAEMIA [None]
  - GENERAL PHYSICAL HEALTH DETERIORATION [None]
